FAERS Safety Report 7428457-2 (Version None)
Quarter: 2011Q2

REPORT INFORMATION
  Report Type: 
  Country: None (occurrence: None)
  Receive Date: 20110421
  Receipt Date: 20110414
  Transmission Date: 20111010
  Serious: Yes (Other)
  Sender: FDA-Public Use
  Company Number: US-ABBOTT-11P-163-0718774-00

PATIENT
  Sex: Male

DRUGS (1)
  1. HUMIRA [Suspect]
     Indication: PSORIASIS

REACTIONS (7)
  - ASTHENIA [None]
  - WEIGHT DECREASED [None]
  - PAIN [None]
  - ILL-DEFINED DISORDER [None]
  - HEPATIC FAILURE [None]
  - INSOMNIA [None]
  - MOBILITY DECREASED [None]
